FAERS Safety Report 5834908-7 (Version None)
Quarter: 2008Q3

REPORT INFORMATION
  Report Type: 
  Country: None (occurrence: None)
  Receive Date: 20080804
  Receipt Date: 20080725
  Transmission Date: 20090109
  Serious: Yes (Death, Hospitalization, Disabling)
  Sender: FDA-Public Use
  Company Number: 001636

PATIENT
  Age: 15 Year
  Sex: Female

DRUGS (6)
  1. BUSULFEX [Suspect]
     Indication: STEM CELL TRANSPLANT
     Dosage: 3.2 ML, INTRAVENOUS
     Route: 042
     Dates: start: 20080516, end: 20080518
  2. FILGRASTIM (FILGRASTIM) [Suspect]
     Dosage: 450 UG, DAILY DOSE
     Dates: start: 20080525, end: 20080610
  3. MELPHALAN (MELPHALAN) [Suspect]
  4. THIOTEPA [Suspect]
  5. TACROLIMUS [Concomitant]
  6. METHOTREXATE [Concomitant]

REACTIONS (16)
  - ASCITES [None]
  - BLOOD PRESSURE DECREASED [None]
  - BONE MARROW TRANSPLANT REJECTION [None]
  - CAPILLARY LEAK SYNDROME [None]
  - CARDIAC FAILURE [None]
  - DIARRHOEA [None]
  - GENERALISED OEDEMA [None]
  - HEPATIC FAILURE [None]
  - MUCOSAL INFLAMMATION [None]
  - NERVOUS SYSTEM DISORDER [None]
  - OBSTRUCTIVE AIRWAYS DISORDER [None]
  - ORAL DISORDER [None]
  - PERICARDIAL EFFUSION [None]
  - PLEURAL EFFUSION [None]
  - PULMONARY HAEMORRHAGE [None]
  - RESPIRATORY FAILURE [None]
